FAERS Safety Report 19476123 (Version 9)
Quarter: 2021Q4

REPORT INFORMATION
  Report Type: Report from Study
  Country: GB (occurrence: GB)
  Receive Date: 20210630
  Receipt Date: 20211029
  Transmission Date: 20220303
  Serious: Yes (Hospitalization)
  Sender: FDA-Public Use
  Company Number: GB-DECIPHERA PHARMACEUTICALS LLC-2021GB000506

PATIENT
  Age: 54 Year
  Sex: Male
  Weight: 49.3 kg

DRUGS (20)
  1. RIPRETINIB [Suspect]
     Active Substance: RIPRETINIB
     Indication: Gastrointestinal stromal tumour
     Dosage: 150 MILLIGRAM, QD
     Route: 048
     Dates: start: 20201207, end: 20210226
  2. RIPRETINIB [Suspect]
     Active Substance: RIPRETINIB
     Dosage: 100 MILLIGRAM, QD
     Route: 048
     Dates: start: 20210226, end: 20210615
  3. RIPRETINIB [Suspect]
     Active Substance: RIPRETINIB
     Dosage: 50 MILLIGRAM, QD
     Route: 048
     Dates: start: 20210712
  4. BISOPROLOL [Concomitant]
     Active Substance: BISOPROLOL
     Indication: Tachycardia
     Dosage: 2.5 MILLIGRAM, QD
     Route: 048
     Dates: start: 201811, end: 20210711
  5. CODEINE PHOSPHATE [Concomitant]
     Active Substance: CODEINE PHOSPHATE
     Indication: Pain
     Dosage: 30 MILLIGRAM, PRN
     Route: 048
     Dates: start: 201811, end: 20210618
  6. LANSOPRAZOLE [Concomitant]
     Active Substance: LANSOPRAZOLE
     Indication: Reflux gastritis
     Dosage: 30 MILLIGRAM, QD
     Route: 048
     Dates: start: 2015
  7. LOPERAMIDE HYDROCHLORIDE [Concomitant]
     Active Substance: LOPERAMIDE HYDROCHLORIDE
     Indication: Diarrhoea
     Dosage: 2 MILLIGRAM, PRN
     Route: 048
     Dates: start: 2015
  8. ACETAMINOPHEN [Concomitant]
     Active Substance: ACETAMINOPHEN
     Indication: Pain
     Dosage: 500 MILLIGRAM, PRN
     Route: 048
     Dates: start: 2015, end: 20210616
  9. RAMIPRIL [Concomitant]
     Active Substance: RAMIPRIL
     Indication: Hypertension
     Dosage: 7.5 MILLIGRAM, QD
     Route: 048
     Dates: start: 201508, end: 20210616
  10. TRAMADOL [Concomitant]
     Active Substance: TRAMADOL
     Indication: Pain
     Dosage: 50 MILLIGRAM, PRN
     Route: 048
     Dates: start: 2015, end: 20210618
  11. COLESEVELAM [Concomitant]
     Active Substance: COLESEVELAM
     Indication: Bile acid malabsorption
     Dosage: 625 MILLIGRAM, QD
     Route: 048
     Dates: start: 20201207, end: 20210616
  12. CALCIUM\CHOLECALCIFEROL [Concomitant]
     Active Substance: CALCIUM\CHOLECALCIFEROL
     Indication: Vitamin supplementation
     Dosage: 1 TABLET, QD
     Route: 048
     Dates: start: 20201207, end: 20210712
  13. FORCEVAL [AMINO ACIDS NOS;ELECTROLYTES NOS;FERROUS FUMARATE;NICOTINAMI [Concomitant]
     Indication: Vitamin supplementation
     Dosage: 1 TABLET, QD
     Route: 048
     Dates: start: 20201207, end: 20210712
  14. UREA [Concomitant]
     Active Substance: UREA
     Indication: Palmar-plantar erythrodysaesthesia syndrome
     Dosage: 1 APPLICATION, BID
     Route: 061
     Dates: start: 20210226
  15. QV [CETYL ALCOHOL;GLYCEROL;PARAFFIN] [Concomitant]
     Indication: Palmar-plantar erythrodysaesthesia syndrome
     Dosage: 1 DOSAGE FORM = 1 APPLICATION, BID
     Route: 061
     Dates: start: 20210118
  16. MINERAL OIL\PARAFFIN [Concomitant]
     Active Substance: MINERAL OIL\PARAFFIN
     Indication: Palmar-plantar erythrodysaesthesia syndrome
     Dosage: 1 DOSAGE FORM = 1 APPLICATION, BID
     Route: 061
     Dates: start: 20210118
  17. DOMPERIDONE [Concomitant]
     Active Substance: DOMPERIDONE
     Indication: Nausea
     Dosage: 10 MILLIGRAM, TID
     Route: 048
     Dates: start: 2020, end: 20210712
  18. FERROUS FUMARATE [Concomitant]
     Active Substance: FERROUS FUMARATE
     Indication: Iron deficiency anaemia
     Dosage: 1 DOSAGE FORM = 1 TABLET
     Route: 048
     Dates: start: 2020, end: 20210712
  19. VITAMINA B12 [Concomitant]
     Indication: Vitamin B complex deficiency
     Dosage: 200 MILLIGRAM/1 ML, EVERY 3 MONTHS
     Route: 030
     Dates: start: 2015
  20. CYCLIZINE [Concomitant]
     Active Substance: CYCLIZINE
     Indication: Illness
     Dosage: 50 MILLIGRAM, TID
     Route: 048
     Dates: start: 202106

REACTIONS (1)
  - Acute hepatic failure [Recovered/Resolved]

NARRATIVE: CASE EVENT DATE: 20210615
